FAERS Safety Report 7814675-8 (Version None)
Quarter: 2011Q4

REPORT INFORMATION
  Report Type: 
  Country: None (occurrence: None)
  Receive Date: 20111013
  Receipt Date: 20111013
  Transmission Date: 20120403
  Serious: Yes (Hospitalization, Other)
  Sender: FDA-Public Use
  Company Number: None

PATIENT
  Sex: Female
  Weight: 78.6 kg

DRUGS (9)
  1. LISINOPRIL [Concomitant]
  2. ROSUVASTATIN [Concomitant]
  3. FOLBEE [Concomitant]
  4. CLOPIDOGREL [Suspect]
     Indication: CORONARY ARTERIAL STENT INSERTION
     Dates: start: 20110823, end: 20110912
  5. CARVEDILOL [Concomitant]
  6. ASPIRIN [Concomitant]
  7. CALCIUM AND VIT D [Concomitant]
  8. FUROSEMIDE [Concomitant]
  9. POTASSIUM CHLORIDE [Concomitant]

REACTIONS (1)
  - BONE MARROW FAILURE [None]
